FAERS Safety Report 10817693 (Version 1)
Quarter: 2015Q1

REPORT INFORMATION
  Report Type: Report from Study
  Country: US (occurrence: US)
  Receive Date: 20150218
  Receipt Date: 20150218
  Transmission Date: 20150721
  Serious: No
  Sender: FDA-Public Use
  Company Number: US-ABBVIE-14K-163-1288767-00

PATIENT
  Age: 66 Year
  Sex: Female

DRUGS (10)
  1. HUMIRA [Suspect]
     Active Substance: ADALIMUMAB
     Indication: COLITIS ULCERATIVE
     Dosage: DAY ONE
     Dates: start: 20140701, end: 20140701
  2. HUMIRA [Suspect]
     Active Substance: ADALIMUMAB
     Dosage: DAY 15
     Dates: start: 20140716, end: 20140716
  3. FOLIC ACID. [Concomitant]
     Active Substance: FOLIC ACID
     Indication: PRODUCT USED FOR UNKNOWN INDICATION
  4. LEVOTHYROXINE [Concomitant]
     Active Substance: LEVOTHYROXINE
     Indication: HYPOTHYROIDISM
  5. CALCIUM 600 + D [Concomitant]
     Active Substance: CALCIUM\VITAMIN D
     Indication: OSTEOPENIA
  6. PREDNISONE. [Concomitant]
     Active Substance: PREDNISONE
     Indication: PRODUCT USED FOR UNKNOWN INDICATION
     Dosage: TAPER
  7. PATANOL [Concomitant]
     Active Substance: OLOPATADINE HYDROCHLORIDE
     Indication: DRY EYE
     Dosage: IN BOTH EYES
  8. HUMIRA [Suspect]
     Active Substance: ADALIMUMAB
  9. FOSAMAX [Concomitant]
     Active Substance: ALENDRONATE SODIUM
     Indication: OSTEOPENIA
  10. PREDNISONE. [Concomitant]
     Active Substance: PREDNISONE
     Dosage: LAST DOSE: 20 SEP 2014

REACTIONS (2)
  - Flatulence [Recovering/Resolving]
  - Abdominal distension [Recovering/Resolving]

NARRATIVE: CASE EVENT DATE: 201409
